FAERS Safety Report 19193380 (Version 6)
Quarter: 2021Q3

REPORT INFORMATION
  Report Type: Report from Study
  Country: None (occurrence: US)
  Receive Date: 20210428
  Receipt Date: 20210708
  Transmission Date: 20211014
  Serious: Yes (Hospitalization, Other)
  Sender: FDA-Public Use
  Company Number: US-ABBVIE-21K-163-3870555-00

PATIENT
  Sex: Male
  Weight: 72.64 kg

DRUGS (7)
  1. VENCLEXTA [Suspect]
     Active Substance: VENETOCLAX
     Indication: NON-HODGKIN^S LYMPHOMA STAGE IV
     Dosage: THEN, 50MG(1X50MG TAB)?ON WEEK 2
     Route: 048
     Dates: start: 2021, end: 2021
  2. VENCLEXTA [Suspect]
     Active Substance: VENETOCLAX
     Route: 048
     Dates: start: 2021
  3. VENCLEXTA [Suspect]
     Active Substance: VENETOCLAX
     Dosage: 200MG(2X100MG TABS) ON WEEK 4
     Route: 048
     Dates: start: 2021, end: 2021
  4. VENCLEXTA [Suspect]
     Active Substance: VENETOCLAX
     Indication: NEOPLASM MALIGNANT
     Dosage: TAKE 20MG(2X10MG TABS) ON WEEK 1
     Route: 048
     Dates: start: 202101, end: 2021
  5. VENCLEXTA [Suspect]
     Active Substance: VENETOCLAX
     Dosage: THEN TAKE 400MG BY MOUTH DAILY AFTER 4 WEEK RAMP UP
     Route: 048
     Dates: start: 2021, end: 2021
  6. VENCLEXTA [Suspect]
     Active Substance: VENETOCLAX
     Dosage: RAMP UP
     Route: 048
     Dates: start: 202103, end: 2021
  7. VENCLEXTA [Suspect]
     Active Substance: VENETOCLAX
     Indication: NON-HODGKIN^S LYMPHOMA
     Dosage: ON WEEK 3
     Route: 048
     Dates: start: 2021, end: 2021

REACTIONS (2)
  - Thrombosis [Not Recovered/Not Resolved]
  - Blindness [Unknown]

NARRATIVE: CASE EVENT DATE: 2021
